FAERS Safety Report 12845327 (Version 1)
Quarter: 2016Q4

REPORT INFORMATION
  Report Type: Spontaneous
  Country: US (occurrence: US)
  Receive Date: 20161013
  Receipt Date: 20161013
  Transmission Date: 20170207
  Serious: No
  Sender: FDA-Public Use
  Company Number: US-JAZZ-JPI-P-019651

PATIENT
  Age: 8 Year
  Sex: Female

DRUGS (4)
  1. XYREM [Suspect]
     Active Substance: SODIUM OXYBATE
     Indication: CATAPLEXY
  2. NUVIGIL [Concomitant]
     Active Substance: ARMODAFINIL
  3. EFFEXOR [Concomitant]
     Active Substance: VENLAFAXINE HYDROCHLORIDE
  4. XYREM [Suspect]
     Active Substance: SODIUM OXYBATE
     Indication: NARCOLEPSY
     Route: 048
     Dates: start: 20120128

REACTIONS (9)
  - Hallucination, visual [Recovered/Resolved]
  - Headache [Recovered/Resolved]
  - Feeling cold [Recovered/Resolved]
  - Cold sweat [Recovered/Resolved]
  - Condition aggravated [Unknown]
  - Pre-existing condition improved [Unknown]
  - Therapeutic response unexpected [Unknown]
  - Eye pain [Recovered/Resolved]
  - Enuresis [Not Recovered/Not Resolved]

NARRATIVE: CASE EVENT DATE: 20120128
